FAERS Safety Report 8302669-8 (Version None)
Quarter: 2012Q2

REPORT INFORMATION
  Report Type: 
  Country: None (occurrence: None)
  Receive Date: 20120420
  Receipt Date: 20120416
  Transmission Date: 20120825
  Serious: Yes (Hospitalization)
  Sender: FDA-Public Use
  Company Number: PHHO2012FR003043

PATIENT
  Sex: Male
  Weight: 40.5 kg

DRUGS (6)
  1. ETOPOSIDE [Suspect]
     Indication: BONE SARCOMA
     Dosage: 110 MG, UNK
     Dates: start: 20110927, end: 20110930
  2. ZOLEDRONOC ACID [Suspect]
     Indication: BONE SARCOMA
     Dosage: 4 MG, UNK
     Route: 065
     Dates: start: 20110720
  3. CISPLATIN [Suspect]
     Indication: BONE SARCOMA
     Dosage: 163 MG, UNK
     Route: 065
     Dates: start: 20111121
  4. ADRIAMYCIN PFS [Concomitant]
     Indication: BONE SARCOMA
     Dosage: 102 MG, UNK
     Route: 065
     Dates: start: 20111121
  5. METHOTREXATE [Suspect]
     Indication: BONE SARCOMA
     Dosage: 17 G, UNK
     Route: 065
     Dates: start: 20110726, end: 20120220
  6. IFOSFAMIDE [Suspect]
     Indication: BONE SARCOMA
     Dosage: 4.4 G, UNK
     Dates: start: 20110929, end: 20110930

REACTIONS (2)
  - RENAL TUBULAR DISORDER [None]
  - HAEMATOMA [None]
